FAERS Safety Report 9221705 (Version 1)
Quarter: 2013Q1

REPORT INFORMATION
  Report Type: Spontaneous
  Country: US (occurrence: None)
  Receive Date: 20120831
  Receipt Date: 20120831
  Transmission Date: 20140127
  Serious: No
  Sender: FDA-Public Use
  Company Number: 163-22393-12053456

PATIENT
  Age: 43 Year
  Sex: Female

DRUGS (5)
  1. ISTODAX [Suspect]
     Indication: MYCOSIS FUNGOIDES
     Dosage: 14,14
     Route: 048
  2. PROTONIX [Concomitant]
  3. SERAQUEL (QUETIAPINE FUMARATE) (UNKNOWN) [Concomitant]
  4. LOVASC (ALL OTHER THERAPEUTIC PRODUCTS) (UNKNOWN) [Concomitant]
  5. NEURONTIN (GABAPENTIN) (UNKNOWN) [Concomitant]

REACTIONS (1)
  - Neuropathy peripheral [None]
